FAERS Safety Report 18130193 (Version 1)
Quarter: 2020Q3

REPORT INFORMATION
  Report Type: Spontaneous
  Country: DE (occurrence: DE)
  Receive Date: 20200810
  Receipt Date: 20200810
  Transmission Date: 20201103
  Serious: Yes (Death, Other)
  Sender: FDA-Public Use
  Company Number: DE-ACTELION-A-CH2020-207699

PATIENT

DRUGS (6)
  1. SILDENAFIL. [Concomitant]
     Active Substance: SILDENAFIL
     Indication: PROTEIN-LOSING GASTROENTEROPATHY
  2. IMMUNOGLOBULINS NOS [Concomitant]
     Active Substance: IMMUNE GLOBULIN NOS
  3. HEPARIN [Concomitant]
     Active Substance: HEPARIN SODIUM
     Route: 058
  4. ALBUMIN [Concomitant]
     Active Substance: ALBUMIN HUMAN
  5. BOSENTAN. [Suspect]
     Active Substance: BOSENTAN
     Indication: PROTEIN-LOSING GASTROENTEROPATHY
     Route: 048
  6. BUDESONIDE. [Concomitant]
     Active Substance: BUDESONIDE
     Indication: PROTEIN-LOSING GASTROENTEROPATHY

REACTIONS (29)
  - Condition aggravated [Unknown]
  - Circulatory collapse [Fatal]
  - Endocarditis [Unknown]
  - Transplant failure [Fatal]
  - Graft haemorrhage [Fatal]
  - Growth disorder [Unknown]
  - Underweight [Unknown]
  - Osteopenia [Unknown]
  - Pathological fracture [Unknown]
  - Ventricular dysfunction [Unknown]
  - Transvalvular pressure gradient decreased [Unknown]
  - Renal impairment [Unknown]
  - Skin infection [Unknown]
  - Arterial stent insertion [Unknown]
  - Sepsis [Fatal]
  - Pneumonia [Fatal]
  - Lymphopenia [Unknown]
  - Thoracic vertebral fracture [Unknown]
  - Heart transplant [Unknown]
  - Heart valve incompetence [Unknown]
  - Cardiac pacemaker insertion [Unknown]
  - Cardiac failure [Unknown]
  - Blood creatinine increased [Unknown]
  - Glomerular filtration rate decreased [Unknown]
  - Delayed puberty [Unknown]
  - Vitamin D deficiency [Unknown]
  - Vascular shunt [Unknown]
  - Angioplasty [Unknown]
  - Therapeutic embolisation [Unknown]
